FAERS Safety Report 7583839-3 (Version None)
Quarter: 2011Q2

REPORT INFORMATION
  Report Type: 
  Country: None (occurrence: None)
  Receive Date: 20110531
  Receipt Date: 20100806
  Transmission Date: 20111010
  Serious: Yes (Other)
  Sender: FDA-Public Use
  Company Number: 312956

PATIENT
  Age: 61 Year
  Sex: Female
  Weight: 80.7 kg

DRUGS (13)
  1. PREMPRO [Suspect]
     Indication: MENOPAUSAL SYMPTOMS
     Dosage: 2.5 MG/.625 MG, ORAL
     Route: 048
     Dates: start: 20001101, end: 20010401
  2. FROVA (FROVATRIPTAN SUCCINATE MONOHYDRATE) [Concomitant]
  3. PREMARIN [Suspect]
     Indication: MENOPAUSAL SYMPTOMS
     Dosage: 1.25 MG
     Dates: start: 19970101, end: 20001001
  4. PROVERA [Suspect]
     Indication: MENOPAUSAL SYMPTOMS
     Dosage: 10 MG ; 10 MG, ORAL
     Route: 048
     Dates: start: 19970101, end: 19980301
  5. PROVERA [Suspect]
     Indication: MENOPAUSAL SYMPTOMS
     Dosage: 10 MG ; 10 MG, ORAL
     Route: 048
     Dates: start: 20020101, end: 20020101
  6. ESTRATEST [Suspect]
     Indication: MENOPAUSAL SYMPTOMS
     Dosage: 0.625/1.25 MG
     Dates: start: 20020101, end: 20020101
  7. ZOCOR [Concomitant]
  8. MEDROXYPROGESTERONE ACETATE [Suspect]
     Indication: MENOPAUSAL SYMPTOMS
     Dosage: ORAL
     Route: 048
     Dates: start: 19980401, end: 20001001
  9. COMBIPATCH [Suspect]
     Indication: MENOPAUSAL SYMPTOMS
     Dates: start: 20010501, end: 20011001
  10. ACTIVELLA [Suspect]
     Indication: MENOPAUSAL SYMPTOMS
     Dosage: ORAL
     Route: 048
     Dates: start: 20020201, end: 20020201
  11. FOSAMAX [Concomitant]
  12. TENORMIN [Concomitant]
  13. CELEBREX [Concomitant]

REACTIONS (1)
  - BREAST CANCER [None]
